FAERS Safety Report 8425846-4 (Version None)
Quarter: 2012Q2

REPORT INFORMATION
  Report Type: 
  Country: None (occurrence: None)
  Receive Date: 20120611
  Receipt Date: 20120601
  Transmission Date: 20120825
  Serious: Yes (Hospitalization)
  Sender: FDA-Public Use
  Company Number: JP-ASTELLAS-2012JP004978

PATIENT
  Age: 85 Year
  Sex: Male

DRUGS (4)
  1. TAMSULOSIN HCL [Concomitant]
     Dosage: 0.2 MG, UID/QD
     Route: 048
  2. ALLOPURINOL [Concomitant]
     Dosage: 100 MG, UNKNOWN/D
     Route: 048
  3. EVIPROSTAT [Concomitant]
     Route: 048
  4. VESICARE [Suspect]
     Dosage: 2.5 MG, UID/QD
     Route: 048

REACTIONS (1)
  - INTERSTITIAL LUNG DISEASE [None]
